FAERS Safety Report 7828976-0 (Version None)
Quarter: 2011Q4

REPORT INFORMATION
  Report Type: 
  Country: None (occurrence: None)
  Receive Date: 20111020
  Receipt Date: 20110208
  Transmission Date: 20120403
  Serious: No
  Sender: FDA-Public Use
  Company Number: US-BAYER-201041493NA

PATIENT
  Sex: Female
  Weight: 71.202 kg

DRUGS (2)
  1. MAGNEVIST [Suspect]
  2. MAGNEVIST [Suspect]
     Indication: NUCLEAR MAGNETIC RESONANCE IMAGING BRAIN
     Dosage: 10 ML, ONCE
     Route: 042
     Dates: start: 20101103, end: 20101103

REACTIONS (1)
  - PRURITUS GENERALISED [None]
